FAERS Safety Report 4503631-3 (Version None)
Quarter: 2004Q3

REPORT INFORMATION
  Report Type: 
  Country: None (occurrence: None)
  Receive Date: 20040928
  Receipt Date: 20040609
  Transmission Date: 20050211
  Serious: No
  Sender: FDA-Public Use
  Company Number: 04P-163-0263645-00

PATIENT
  Age: 76 Year
  Sex: Female
  Weight: 84.369 kg

DRUGS (9)
  1. HUMIRA [Suspect]
     Indication: RHEUMATOID ARTHRITIS
     Dosage: 40 MG, 1 IN 2 WK, SUBCUTANEOUS
     Route: 058
     Dates: start: 20040301
  2. ROFECOXIB [Concomitant]
  3. LEFLUNOMIDE [Concomitant]
  4. COLCHICINE [Concomitant]
  5. MULTI-VITAMINS [Concomitant]
  6. CYANOCOBALAMIN [Concomitant]
  7. PYRIDOXINE HYDROCHLORIDE [Concomitant]
  8. FOLIC ACID [Concomitant]
  9. ASCORBIC ACID [Concomitant]

REACTIONS (3)
  - CONDITION AGGRAVATED [None]
  - NEUROPATHY PERIPHERAL [None]
  - UNEXPECTED THERAPEUTIC DRUG EFFECT [None]
